FAERS Safety Report 4283521-4 (Version None)
Quarter: 2004Q1

REPORT INFORMATION
  Report Type: 
  Country: None (occurrence: None)
  Receive Date: 20040121
  Receipt Date: 20030520
  Transmission Date: 20041129
  Serious: Yes (Hospitalization)
  Sender: FDA-Public Use
  Company Number: A03200301087

PATIENT
  Age: 53 Year
  Sex: Male
  Weight: 78.0187 kg

DRUGS (8)
  1. PLAVIX [Suspect]
     Indication: PERIPHERAL VASCULAR DISORDER
     Dosage: 75 MG QD - ORAL
     Route: 048
     Dates: start: 20030301, end: 20030509
  2. HYDROXYZINE [Concomitant]
  3. URSODIOL [Concomitant]
  4. TRAZODONE HCL [Concomitant]
  5. METOCLOPRAMIDE [Concomitant]
  6. DICYCLOMINE HYDROCHLORIDE [Concomitant]
  7. GABAPENTIN [Concomitant]
  8. NIFEDIPINE [Concomitant]

REACTIONS (1)
  - THROMBOTIC THROMBOCYTOPENIC PURPURA [None]
